FAERS Safety Report 5300957-0 (Version None)
Quarter: 2007Q1

REPORT INFORMATION
  Report Type: 
  Country: None (occurrence: None)
  Receive Date: 20070208
  Receipt Date: 20060830
  Transmission Date: 20070707
  Serious: Yes (Other)
  Sender: FDA-Public Use
  Company Number: PROG00206002895

PATIENT
  Age: 74 Year
  Sex: Female

DRUGS (3)
  1. PROMETRIUM [Suspect]
     Indication: MENOPAUSAL SYMPTOMS
     Dosage: DAILY ORAL
     Route: 048
  2. ESTRADIOL [Suspect]
     Indication: MENOPAUSAL SYMPTOMS
     Dosage: DAILY
  3. ESTRACE [Suspect]
     Indication: MENOPAUSAL SYMPTOMS
     Dosage: DAILY

REACTIONS (1)
  - BREAST CANCER [None]
